FAERS Safety Report 8951082 (Version 1)
Quarter: 2012Q4

REPORT INFORMATION
  Report Type: Spontaneous
  Country: US (occurrence: None)
  Receive Date: 20121129
  Receipt Date: 20121129
  Transmission Date: 20130627
  Serious: Yes (Other)
  Sender: FDA-Public Use
  Company Number: 2012MA013506

PATIENT
  Age: 3 Year
  Sex: Male
  Weight: 14.52 kg

DRUGS (2)
  1. IBUPROFEN [Suspect]
     Route: 048
  2. IBUPROFEN [Suspect]
     Route: 048

REACTIONS (12)
  - Product odour abnormal [None]
  - Product deposit [None]
  - Vomiting [None]
  - Diarrhoea [None]
  - Abasia [None]
  - Pyrexia [None]
  - Toxicity to various agents [None]
  - Epigastric discomfort [None]
  - Gastritis [None]
  - Food poisoning [None]
  - Bacterial infection [None]
  - Abdominal pain [None]
